FAERS Safety Report 8177992-0 (Version None)
Quarter: 2012Q1

REPORT INFORMATION
  Report Type: 
  Country: None (occurrence: None)
  Receive Date: 20120301
  Receipt Date: 20120227
  Transmission Date: 20120608
  Serious: No
  Sender: FDA-Public Use
  Company Number: US-BAYER-2012-019746

PATIENT
  Age: 45 Year
  Sex: Female
  Weight: 81.633 kg

DRUGS (8)
  1. MANGANESE [Concomitant]
     Dosage: 15 MG, UNK
  2. CHOLINE [Concomitant]
  3. FOLBIC [Concomitant]
  4. BACLOFEN [Concomitant]
     Dosage: 20 MG, UNK
  5. B COMPLEX [B3,B6,B2,B1 HCL] [Concomitant]
  6. VITAMIN B6 [Concomitant]
  7. BETASERON [Suspect]
     Dosage: 1 ML, QOD
     Route: 058
  8. VITAMIN B-12 [Concomitant]

REACTIONS (3)
  - INJECTION SITE HAEMATOMA [None]
  - INJECTION SITE REACTION [None]
  - INJECTION SITE PAIN [None]
